FAERS Safety Report 6526710-8 (Version None)
Quarter: 2009Q4

REPORT INFORMATION
  Report Type: 
  Country: None (occurrence: None)
  Receive Date: 20091214
  Receipt Date: 20091013
  Transmission Date: 20100525
  Serious: Yes (Other)
  Sender: FDA-Public Use
  Company Number: 662556

PATIENT
  Age: 53 Year
  Sex: Female

DRUGS (2)
  1. PEGASYS [Suspect]
     Indication: HEPATITIS C
     Dosage: 180 UG 1 PER WEEK
     Dates: start: 20090603
  2. RIBAVIRIN [Suspect]
     Indication: HEPATITIS C
     Dosage: 2 PER DAY
     Dates: start: 20090603, end: 20090825

REACTIONS (2)
  - ALOPECIA [None]
  - ANAPHYLACTIC SHOCK [None]
